FAERS Safety Report 16919950 (Version 1)
Quarter: 2019Q4

REPORT INFORMATION
  Report Type: Report from Study
  Country: US (occurrence: US)
  Receive Date: 20191015
  Receipt Date: 20191015
  Transmission Date: 20200122
  Serious: Yes (Other)
  Sender: FDA-Public Use
  Company Number: US-ROCHE-2430200

PATIENT
  Sex: Female

DRUGS (2)
  1. ACTEMRA [Suspect]
     Active Substance: TOCILIZUMAB
     Indication: ACUTE LEFT VENTRICULAR FAILURE
  2. ACTEMRA [Suspect]
     Active Substance: TOCILIZUMAB
     Indication: GENITAL HERPES
     Route: 058

REACTIONS (1)
  - Cardiac failure congestive [Unknown]
